FAERS Safety Report 7215211-X (Version None)
Quarter: 2011Q1

REPORT INFORMATION
  Report Type: 
  Country: None (occurrence: None)
  Receive Date: 20110107
  Receipt Date: 20101101
  Transmission Date: 20110831
  Serious: No
  Sender: FDA-Public Use
  Company Number: A0889983A

PATIENT
  Age: 59 Year
  Sex: Male

DRUGS (2)
  1. NORVASC [Concomitant]
  2. LOVAZA [Suspect]
     Dosage: 1CAP PER DAY
     Route: 048
     Dates: start: 20081101, end: 20100101

REACTIONS (2)
  - FEELING ABNORMAL [None]
  - GOUT [None]
